FAERS Safety Report 7774888-0 (Version None)
Quarter: 2011Q3

REPORT INFORMATION
  Report Type: 
  Country: None (occurrence: None)
  Receive Date: 20110923
  Receipt Date: 20110916
  Transmission Date: 20111222
  Serious: Yes (Hospitalization)
  Sender: FDA-Public Use
  Company Number: US-UCBSA-041473

PATIENT
  Age: 36 Year
  Sex: Female
  Weight: 104 kg

DRUGS (7)
  1. TOPIRAMATE [Concomitant]
     Indication: CONVULSION
  2. PHENYTOIN [Concomitant]
     Indication: CONVULSION
  3. ZONISAMIDE [Concomitant]
     Indication: CONVULSION
  4. KEPPRA [Suspect]
     Indication: EPILEPSY
     Route: 048
     Dates: start: 20100215
  5. CARBAMAZEPINE [Concomitant]
     Indication: CONVULSION
  6. CLONAZEPAM [Concomitant]
     Indication: CONVULSION
  7. VIMPAT [Suspect]
     Indication: CONVULSION
     Route: 048
     Dates: start: 20100222

REACTIONS (2)
  - CONVULSION [None]
  - PYREXIA [None]
